FAERS Safety Report 12923227 (Version 1)
Quarter: 2016Q4

REPORT INFORMATION
  Report Type: Report from Study
  Country: US (occurrence: US)
  Receive Date: 20161109
  Receipt Date: 20161109
  Transmission Date: 20170207
  Serious: Yes (Death)
  Sender: FDA-Public Use
  Company Number: US-ACTELION-A-US2016-145050

PATIENT
  Age: 38 Year
  Sex: Male

DRUGS (9)
  1. CELEXA [Concomitant]
     Active Substance: CITALOPRAM HYDROBROMIDE
  2. VELETRI [Suspect]
     Active Substance: EPOPROSTENOL
     Indication: PULMONARY ARTERIAL HYPERTENSION
     Dosage: 10 NG/KG, PER MIN
     Route: 042
     Dates: start: 20160930
  3. SILDENAFIL. [Concomitant]
     Active Substance: SILDENAFIL
  4. XIFAXAN [Concomitant]
     Active Substance: RIFAXIMIN
  5. LASIX [Concomitant]
     Active Substance: FUROSEMIDE
  6. CORGARD [Concomitant]
     Active Substance: NADOLOL
  7. LACTULOSE. [Concomitant]
     Active Substance: LACTULOSE
  8. SPIRONOLACTONE. [Concomitant]
     Active Substance: SPIRONOLACTONE
  9. VITAMIN D3 [Concomitant]
     Active Substance: CHOLECALCIFEROL

REACTIONS (1)
  - Death [Fatal]

NARRATIVE: CASE EVENT DATE: 20161017
